FAERS Safety Report 4929595-6 (Version None)
Quarter: 2006Q1

REPORT INFORMATION
  Report Type: 
  Country: None (occurrence: None)
  Receive Date: 20060224
  Receipt Date: 20060124
  Transmission Date: 20060701
  Serious: Yes (Other)
  Sender: FDA-Public Use
  Company Number: 2004213425US

PATIENT
  Age: 49 Year
  Sex: Female

DRUGS (4)
  1. BEXTRA [Suspect]
     Indication: ILL-DEFINED DISORDER
     Dosage: 20 MG
     Dates: start: 20030615, end: 20030620
  2. PREDNISONE TAB [Suspect]
     Indication: ILL-DEFINED DISORDER
  3. ACIPHEX [Concomitant]
  4. PROMETRIUM [Concomitant]

REACTIONS (6)
  - ADRENAL INSUFFICIENCY [None]
  - OSTEOPOROSIS [None]
  - RASH [None]
  - RESPIRATORY DISORDER [None]
  - STEVENS-JOHNSON SYNDROME [None]
  - URINARY TRACT DISORDER [None]
